FAERS Safety Report 5614381-4 (Version None)
Quarter: 2008Q1

REPORT INFORMATION
  Report Type: 
  Country: None (occurrence: None)
  Receive Date: 20080205
  Receipt Date: 20080124
  Transmission Date: 20080703
  Serious: Yes (Other)
  Sender: FDA-Public Use
  Company Number: US-PFIZER INC-2008007969

PATIENT
  Sex: Male

DRUGS (2)
  1. DILANTIN [Suspect]
  2. PHENYTOIN [Suspect]

REACTIONS (2)
  - CONVULSION [None]
  - DRUG LEVEL DECREASED [None]
